FAERS Safety Report 8336374-9 (Version None)
Quarter: 2012Q2

REPORT INFORMATION
  Report Type: 
  Country: None (occurrence: None)
  Receive Date: 20120504
  Receipt Date: 20120427
  Transmission Date: 20120825
  Serious: Yes (Hospitalization)
  Sender: FDA-Public Use
  Company Number: PHHO2011NO01639

PATIENT
  Sex: Male
  Weight: 105 kg

DRUGS (12)
  1. BLINDED ALISKIREN [Suspect]
     Indication: CARDIAC FAILURE
     Dosage: CODE NOT BROKEN
     Route: 048
     Dates: start: 20110201, end: 20110214
  2. ENALAPRIL MALEATE [Suspect]
     Indication: CARDIAC FAILURE
     Dosage: CODE NOT BROKEN
     Route: 048
     Dates: start: 20110201, end: 20110214
  3. ENALAPRIL MALEATE [Suspect]
     Dosage: CODE NOT BROKEN
     Route: 048
     Dates: start: 20110215, end: 20120409
  4. BLINDED NO TREATMENT RECEIVED [Suspect]
     Dosage: CODE NOT BROKEN
     Route: 048
     Dates: start: 20110215, end: 20120409
  5. BLINDED NO TREATMENT RECEIVED [Suspect]
     Indication: CARDIAC FAILURE
     Dosage: CODE NOT BROKEN
     Route: 048
     Dates: start: 20110201, end: 20110214
  6. SIMVASTATIN [Concomitant]
     Indication: MYOCARDIAL INFARCTION
     Dosage: 40 MG, QD
     Route: 048
     Dates: start: 20090201
  7. METOPROLOL SUCCINATE [Concomitant]
     Indication: MYOCARDIAL INFARCTION
  8. BLINDED ALISKIREN [Suspect]
     Dosage: CODE NOT BROKEN
     Route: 048
     Dates: start: 20110215, end: 20120409
  9. ASPIRIN [Concomitant]
     Indication: MYOCARDIAL INFARCTION
     Dosage: 75 MG, QD
     Route: 048
     Dates: start: 20090201
  10. SPIRONOLACTONE [Concomitant]
     Indication: CARDIAC FAILURE CHRONIC
     Dosage: 25 MG, QD
     Route: 048
     Dates: start: 20091001, end: 20120311
  11. BUMETANIDE [Concomitant]
     Indication: CARDIAC FAILURE CHRONIC
     Dosage: 2 MG, BID
     Route: 048
     Dates: start: 20090201, end: 20120409
  12. METOPROLOL SUCCINATE [Concomitant]
     Indication: CARDIAC FAILURE CHRONIC
     Dosage: 75 MG, QD
     Route: 048
     Dates: start: 20090101

REACTIONS (3)
  - DISEASE PROGRESSION [None]
  - CARDIAC FAILURE CHRONIC [None]
  - CARDIAC FAILURE [None]
